FAERS Safety Report 7007293-5 (Version None)
Quarter: 2010Q3

REPORT INFORMATION
  Report Type: 
  Country: None (occurrence: None)
  Receive Date: 20100922
  Receipt Date: 20100915
  Transmission Date: 20110219
  Serious: Yes (Hospitalization, Other)
  Sender: FDA-Public Use
  Company Number: PHHY2010JP08073

PATIENT
  Sex: Male
  Weight: 73 kg

DRUGS (11)
  1. DIOVAN [Suspect]
     Indication: HYPERTENSION
     Dosage: 80 MG, QD
     Route: 048
     Dates: start: 20080123, end: 20081006
  2. DIOVAN [Suspect]
     Dosage: 40 MG, QD
     Route: 048
     Dates: start: 20081007, end: 20081215
  3. DIOVAN [Suspect]
     Dosage: 40 MG, BID
     Route: 048
     Dates: start: 20081216, end: 20090714
  4. DIOVAN [Suspect]
     Dosage: 40 MG, QD
     Route: 048
     Dates: start: 20090715, end: 20090811
  5. DIOVAN [Suspect]
     Dosage: 20 MG, QD
     Route: 048
     Dates: start: 20090826, end: 20100119
  6. DIOVAN [Suspect]
     Dosage: 40 MG, QD
     Route: 048
     Dates: start: 20100120
  7. SIGMART [Concomitant]
     Dosage: 10 MG
     Route: 048
     Dates: start: 20080122, end: 20080219
  8. MEVALOTIN [Concomitant]
     Dosage: 10 MG
     Route: 048
     Dates: start: 20050617
  9. TAKEPRON [Concomitant]
     Dosage: 15 MG
     Route: 048
     Dates: start: 20071214
  10. PANALDINE [Concomitant]
     Dosage: 200 MG
     Route: 048
     Dates: start: 20071115
  11. ASPIRIN [Concomitant]
     Dosage: 200 MG
     Route: 048
     Dates: start: 20071115

REACTIONS (3)
  - BLOOD PRESSURE DIASTOLIC DECREASED [None]
  - BLOOD URIC ACID DECREASED [None]
  - HYPONATRAEMIA [None]
